FAERS Safety Report 16564502 (Version 1)
Quarter: 2019Q3

REPORT INFORMATION
  Report Type: Spontaneous
  Country: US (occurrence: US)
  Receive Date: 20190712
  Receipt Date: 20190712
  Transmission Date: 20191004
  Serious: No
  Sender: FDA-Public Use
  Company Number: US-BAYER-2019-131430

PATIENT
  Age: 24 Year
  Sex: Female

DRUGS (1)
  1. SKYLA [Suspect]
     Active Substance: LEVONORGESTREL
     Indication: CONTRACEPTION
     Dosage: 14 MCG/24HR, CONT
     Route: 015
     Dates: start: 20190412, end: 20190412

REACTIONS (3)
  - Post procedural discomfort [None]
  - Procedural pain [None]
  - Complication of device insertion [None]

NARRATIVE: CASE EVENT DATE: 20190412
